FAERS Safety Report 9391980 (Version 2)
Quarter: 2013Q3

REPORT INFORMATION
  Report Type: Spontaneous
  Country: US (occurrence: US)
  Receive Date: 20130709
  Receipt Date: 20130819
  Transmission Date: 20140515
  Serious: Yes (Death)
  Sender: FDA-Public Use
  Company Number: US-GILEAD-2013-0078501

PATIENT
  Age: 83 Year
  Sex: Female

DRUGS (5)
  1. LETAIRIS [Suspect]
     Indication: PULMONARY HYPERTENSION
     Dosage: 5 MG, QD
     Route: 048
     Dates: start: 20130201, end: 201304
  2. LETAIRIS [Suspect]
     Indication: SCLERODERMA
     Dosage: 10 UNK, UNK
     Route: 048
     Dates: start: 201304, end: 20130529
  3. SILDENAFIL [Concomitant]
  4. CLONAZEPAM [Concomitant]
  5. FUROSEMIDE [Concomitant]

REACTIONS (1)
  - Respiratory failure [Fatal]
